FAERS Safety Report 12294040 (Version 3)
Quarter: 2016Q2

REPORT INFORMATION
  Report Type: Spontaneous
  Country: US (occurrence: US)
  Receive Date: 20160422
  Receipt Date: 20160523
  Transmission Date: 20160815
  Serious: Yes (Other)
  Sender: FDA-Public Use
  Company Number: US-BEH-2016061344

PATIENT
  Age: 57 Year
  Sex: Female
  Weight: 79 kg

DRUGS (19)
  1. ACETAMINOPHEN. [Concomitant]
     Active Substance: ACETAMINOPHEN
  2. LEVOTHYROXINE. [Concomitant]
     Active Substance: LEVOTHYROXINE
  3. HIZENTRA [Suspect]
     Active Substance: HUMAN IMMUNOGLOBULIN G
     Route: 058
     Dates: start: 20110404
  4. FISH OIL [Concomitant]
     Active Substance: FISH OIL
  5. EPIPEN [Concomitant]
     Active Substance: EPINEPHRINE
  6. METHOTREXATE [Concomitant]
     Active Substance: METHOTREXATE
  7. BENADRYL [Concomitant]
     Active Substance: DIPHENHYDRAMINE HYDROCHLORIDE
  8. LOSARTAN-HCTZ [Concomitant]
     Active Substance: HYDROCHLOROTHIAZIDE\LOSARTAN
  9. HIZENTRA [Suspect]
     Active Substance: HUMAN IMMUNOGLOBULIN G
     Route: 058
     Dates: start: 20120326
  10. PANTOPRAZOLE [Concomitant]
     Active Substance: PANTOPRAZOLE SODIUM
  11. FOLIC ACID. [Concomitant]
     Active Substance: FOLIC ACID
  12. ONE-A-DAY [Concomitant]
  13. DIPHENHYDRAMINE. [Concomitant]
     Active Substance: DIPHENHYDRAMINE
  14. LIDOCAINE. [Concomitant]
     Active Substance: LIDOCAINE
  15. PRILOCAINE [Concomitant]
     Active Substance: PRILOCAINE
  16. HIZENTRA [Suspect]
     Active Substance: HUMAN IMMUNOGLOBULIN G
  17. HIZENTRA [Suspect]
     Active Substance: HUMAN IMMUNOGLOBULIN G
     Indication: IMMUNODEFICIENCY COMMON VARIABLE
  18. ZITHROMAX [Suspect]
     Active Substance: AZITHROMYCIN DIHYDRATE
  19. ASPIRIN. [Concomitant]
     Active Substance: ASPIRIN

REACTIONS (3)
  - Pyrexia [Unknown]
  - Rash [Unknown]
  - Pneumonia [Unknown]

NARRATIVE: CASE EVENT DATE: 20160405
